FAERS Safety Report 6025414-8 (Version None)
Quarter: 2008Q4

REPORT INFORMATION
  Report Type: 
  Country: None (occurrence: None)
  Receive Date: 20081229
  Receipt Date: 20081229
  Transmission Date: 20090506
  Serious: No
  Sender: FDA-Public Use
  Company Number: None

PATIENT
  Age: 32 Year
  Sex: Female
  Weight: 54.4316 kg

DRUGS (2)
  1. ZYRTEC [Suspect]
     Indication: POSTNASAL DRIP
     Dosage: 10 MG  ONCE A DAY PO
     Route: 048
     Dates: start: 20080701, end: 20081220
  2. ZYRTEC [Suspect]
     Indication: RHINITIS ALLERGIC
     Dosage: 10 MG  ONCE A DAY PO
     Route: 048
     Dates: start: 20080701, end: 20081220

REACTIONS (4)
  - DRUG WITHDRAWAL SYNDROME [None]
  - INSOMNIA [None]
  - NAUSEA [None]
  - PRURITUS [None]
